FAERS Safety Report 8795380 (Version 1)
Quarter: 2012Q4

REPORT INFORMATION
  Report Type: 
  Country: US (occurrence: US)
  Receive Date: 20120917
  Receipt Date: 20120917
  Transmission Date: 20130627
  Serious: No
  Sender: FDA-Public Use
  Company Number: US-B.I. PHARMACEUTICALS,INC./RIDGEFIELD-2012-BP-22392BP

PATIENT
  Age: 67 Year
  Sex: Male
  Weight: 84 kg

DRUGS (11)
  1. PRADAXA [Suspect]
     Indication: CEREBROVASCULAR ACCIDENT
     Dosage: 300 mg
     Route: 048
     Dates: start: 20120903
  2. BABY ASPIRIN [Concomitant]
     Indication: CARDIOVASCULAR EVENT PROPHYLAXIS
     Dosage: 81 mg
     Route: 048
     Dates: start: 201207
  3. LEVOTHYROXINE [Concomitant]
     Indication: HYPOTHYROIDISM
     Dosage: 50 mg
     Route: 048
     Dates: start: 2009
  4. COMPLEX VITAMIN B [Concomitant]
     Indication: SUPPLEMENTATION THERAPY
     Route: 048
     Dates: start: 2002
  5. OMEGA 3 [Concomitant]
     Indication: SUPPLEMENTATION THERAPY
     Dosage: 1200 mg
     Route: 048
     Dates: start: 2002
  6. METOPROLOL [Concomitant]
     Indication: CARDIOVASCULAR EVENT PROPHYLAXIS
     Dosage: 50 mg
     Route: 048
     Dates: start: 2002
  7. DIGOXIN [Concomitant]
     Indication: CARDIOVASCULAR EVENT PROPHYLAXIS
     Dosage: 200 mg
     Route: 048
     Dates: start: 2002
  8. MULTAQ [Concomitant]
     Indication: CEREBROVASCULAR ACCIDENT
     Dosage: 800 mg
     Route: 048
     Dates: start: 201207
  9. ATORVASTATIN [Concomitant]
     Indication: CARDIOVASCULAR EVENT PROPHYLAXIS
     Dosage: 10 mg
     Route: 048
     Dates: start: 2002
  10. NITROGLYCERIN PATCH [Concomitant]
     Indication: CARDIOVASCULAR EVENT PROPHYLAXIS
     Dosage: 2 mg
     Route: 061
     Dates: start: 2002
  11. NITROGLYCERIN TABLETS [Concomitant]
     Indication: CHEST PAIN
     Route: 048

REACTIONS (3)
  - Rash [Not Recovered/Not Resolved]
  - Rash [Not Recovered/Not Resolved]
  - Sensation of foreign body [Not Recovered/Not Resolved]
